FAERS Safety Report 5427759-9 (Version None)
Quarter: 2007Q3

REPORT INFORMATION
  Report Type: 
  Country: None (occurrence: None)
  Receive Date: 20070828
  Receipt Date: 20070823
  Transmission Date: 20080115
  Serious: No
  Sender: FDA-Public Use
  Company Number: US-BAXTER-2007BH005287

PATIENT

DRUGS (3)
  1. BALANCED SALT SOLUTION [Suspect]
     Indication: CATARACT OPERATION
     Dosage: DOSE UNIT:UNKNOWN
     Route: 047
     Dates: start: 20070608, end: 20070608
  2. BALANCED SALT SOLUTION [Suspect]
     Dosage: DOSE UNIT:UNKNOWN
     Route: 047
     Dates: start: 20070608, end: 20070608
  3. EPINEPHRINE [Suspect]
     Indication: CATARACT OPERATION
     Dosage: DOSE UNIT:UNKNOWN
     Route: 047
     Dates: start: 20070608, end: 20070608

REACTIONS (2)
  - CORNEAL OEDEMA [None]
  - VISION BLURRED [None]
